FAERS Safety Report 9373078 (Version 1)
Quarter: 2013Q2

REPORT INFORMATION
  Report Type: Spontaneous
  Country: BR (occurrence: BR)
  Receive Date: 20130627
  Receipt Date: 20130627
  Transmission Date: 20140414
  Serious: Yes (Other)
  Sender: FDA-Public Use
  Company Number: BR-PFIZER INC-2013188540

PATIENT
  Age: 17 Year
  Sex: Male
  Weight: 60 kg

DRUGS (4)
  1. GEODON [Suspect]
     Indication: SCHIZOPHRENIA
     Dosage: 80 MG, 1X/DAY IN THE MORNING
     Route: 048
     Dates: start: 20130620
  2. GEODON [Suspect]
     Indication: AGGRESSION
  3. GARDENAL ^AVENTIS^ [Concomitant]
     Indication: SCHIZOPHRENIA
     Dosage: UNK
     Route: 048
  4. DEPAKENE [Concomitant]
     Indication: SCHIZOPHRENIA
     Dosage: UNK
     Route: 048

REACTIONS (3)
  - Hydrocephalus [Not Recovered/Not Resolved]
  - Insomnia [Unknown]
  - Somnolence [Not Recovered/Not Resolved]
